FAERS Safety Report 4648415-0 (Version None)
Quarter: 2005Q2

REPORT INFORMATION
  Report Type: 
  Country: None (occurrence: None)
  Receive Date: 20050429
  Receipt Date: 20050422
  Transmission Date: 20051028
  Serious: Yes (Death, Hospitalization)
  Sender: FDA-Public Use
  Company Number: PHBS2005US05827

PATIENT
  Age: 54 Year
  Sex: Male

DRUGS (7)
  1. HYDROCHLOROTHIAZIDE [Suspect]
  2. METOPROLOL TARTRATE [Suspect]
  3. ASPIRIN [Concomitant]
  4. HYDROMORPHONE HCL [Concomitant]
     Dosage: UNK, PRN
  5. LANSOPRAZOLE [Concomitant]
  6. PREDNISONE [Concomitant]
     Dosage: 10 MG/DAY
  7. QUINAPRIL [Concomitant]

REACTIONS (22)
  - ABDOMINAL PAIN [None]
  - ACUTE ABDOMEN [None]
  - ANAEMIA [None]
  - CARDIAC ARREST [None]
  - FREQUENT BOWEL MOVEMENTS [None]
  - GASTROINTESTINAL HAEMORRHAGE [None]
  - GASTROINTESTINAL NECROSIS [None]
  - HYPERHIDROSIS [None]
  - HYPERTENSION [None]
  - INTERMITTENT CLAUDICATION [None]
  - ISCHAEMIA [None]
  - LACTIC ACIDOSIS [None]
  - MESENTERIC OCCLUSION [None]
  - NAUSEA [None]
  - POLYARTERITIS NODOSA [None]
  - RAYNAUD'S PHENOMENON [None]
  - TESTICULAR PAIN [None]
  - VASCULITIS [None]
  - VISUAL ACUITY REDUCED [None]
  - VISUAL DISTURBANCE [None]
  - VOMITING [None]
  - WEIGHT DECREASED [None]
